FAERS Safety Report 4815584-9 (Version None)
Quarter: 2005Q4

REPORT INFORMATION
  Report Type: 
  Country: None (occurrence: None)
  Receive Date: 20051031
  Receipt Date: 20051024
  Transmission Date: 20060501
  Serious: Yes (Hospitalization, Other)
  Sender: FDA-Public Use
  Company Number: TR-BRISTOL-MYERS SQUIBB COMPANY-13155163

PATIENT
  Age: 23 Year
  Sex: Female

DRUGS (4)
  1. CYCLOPHOSPHAMIDE [Suspect]
     Indication: LYMPHOMA
     Dosage: ON DAY 1
     Route: 042
  2. DOXORUBICIN [Suspect]
     Indication: LYMPHOMA
     Dosage: ON DAY 1
     Route: 042
  3. VINCRISTINE SULFATE [Suspect]
     Indication: LYMPHOMA
     Dosage: ON DAY 1
     Route: 042
  4. PREDNISONE [Suspect]
     Indication: LYMPHOMA
     Dosage: ON DAYS 1-5
     Route: 048

REACTIONS (8)
  - ACCIDENTAL OVERDOSE [None]
  - BONE MARROW FAILURE [None]
  - DIARRHOEA [None]
  - ILEUS PARALYTIC [None]
  - INAPPROPRIATE ANTIDIURETIC HORMONE SECRETION [None]
  - NEUROGENIC BLADDER [None]
  - NEUROPATHY PERIPHERAL [None]
  - PYREXIA [None]
